FAERS Safety Report 5143505-0 (Version None)
Quarter: 2006Q4

REPORT INFORMATION
  Report Type: 
  Country: None (occurrence: None)
  Receive Date: 20061103
  Receipt Date: 20061027
  Transmission Date: 20070319
  Serious: Yes (Hospitalization)
  Sender: FDA-Public Use
  Company Number: JP-GLAXOSMITHKLINE-B0444838A

PATIENT
  Age: 24 Year
  Sex: Male

DRUGS (14)
  1. ZIAGEN [Suspect]
     Indication: HIV INFECTION
     Dosage: 300MG TWICE PER DAY
     Route: 048
     Dates: start: 20050405, end: 20050621
  2. EPIVIR [Suspect]
     Indication: HIV INFECTION
     Dosage: 300MG PER DAY
     Route: 048
     Dates: start: 20050701
  3. ZERIT [Suspect]
     Indication: HIV INFECTION
     Route: 048
     Dates: start: 20050405, end: 20050621
  4. KALETRA [Suspect]
     Indication: HIV INFECTION
     Route: 048
     Dates: start: 20050405, end: 20050616
  5. NORVIR [Concomitant]
     Indication: HIV INFECTION
     Route: 048
     Dates: start: 20050617
  6. REYATAZ [Concomitant]
     Indication: HIV INFECTION
     Route: 048
     Dates: start: 20050617
  7. VIREAD [Concomitant]
     Indication: HIV INFECTION
     Route: 048
     Dates: start: 20050701
  8. ISCOTIN [Concomitant]
     Indication: HIV INFECTION
     Dosage: 300MG PER DAY
     Route: 065
     Dates: start: 20041228, end: 20060113
  9. EBUTOL [Concomitant]
     Indication: TUBERCULOSIS
     Dosage: 750MG PER DAY
     Route: 048
     Dates: start: 20041228, end: 20060113
  10. RIFABUTIN [Concomitant]
     Indication: TUBERCULOSIS
     Route: 065
     Dates: start: 20050329, end: 20060113
  11. PYDOXAL [Concomitant]
     Indication: TUBERCULOSIS
     Dosage: 10MG THREE TIMES PER DAY
     Route: 048
     Dates: start: 20050112, end: 20060113
  12. ALLEGRA [Concomitant]
     Indication: ECZEMA
     Dosage: 60MG TWICE PER DAY
     Route: 048
     Dates: start: 20050220, end: 20050621
  13. PENTAMIDINE ISETHIONATE [Concomitant]
     Indication: ANTIFUNGAL PROPHYLAXIS
     Dosage: 300MG IN THE MORNING
     Route: 042
     Dates: start: 20050114, end: 20050516
  14. BACTRIM [Concomitant]
     Indication: ANTIFUNGAL PROPHYLAXIS
     Dosage: 1TAB PER DAY
     Route: 048
     Dates: start: 20050526

REACTIONS (3)
  - HEPATITIS B [None]
  - IMMUNE RECONSTITUTION SYNDROME [None]
  - KAPOSI'S SARCOMA [None]
